FAERS Safety Report 23710449 (Version 3)
Quarter: 2024Q2

REPORT INFORMATION
  Report Type: Spontaneous
  Country: JP (occurrence: JP)
  Receive Date: 20240405
  Receipt Date: 20240507
  Transmission Date: 20240715
  Serious: Yes (Other)
  Sender: FDA-Public Use
  Company Number: JP-KYOWAKIRIN-2024KK006269

PATIENT
  Age: 2 Year
  Sex: Male

DRUGS (1)
  1. DARBEPOETIN ALFA [Suspect]
     Active Substance: DARBEPOETIN ALFA
     Indication: Nephrogenic anaemia
     Dosage: 5 MILLIGRAM, QWK (THE PATIENT HAD BEEN RECEIVING NESP SINCE THE AGE OF 3 MONTHS)
     Route: 010

REACTIONS (2)
  - Aplasia pure red cell [Unknown]
  - Off label use [Unknown]

NARRATIVE: CASE EVENT DATE: 20231101
